FAERS Safety Report 10331604 (Version 1)
Quarter: 2014Q3

REPORT INFORMATION
  Report Type: Spontaneous
  Country: GB (occurrence: None)
  Receive Date: 20140718
  Receipt Date: 20140718
  Transmission Date: 20150326
  Serious: Yes (Other)
  Sender: FDA-Public Use
  Company Number: 2436281

PATIENT
  Age: 51 Year
  Sex: Male

DRUGS (6)
  1. DOXORUBICIN HYDROCHLORIDE. [Suspect]
     Active Substance: DOXORUBICIN HYDROCHLORIDE
     Indication: DIFFUSE LARGE B-CELL LYMPHOMA
     Dosage: 6 CYCLES OF R-CHOP AT 3 WEEK INTERVAL PRIOR TO EACH CYCLE
     Dates: start: 20140122, end: 201406
  2. CLOZAPINE. [Suspect]
     Active Substance: CLOZAPINE
     Indication: DIFFUSE LARGE B-CELL LYMPHOMA
     Route: 048
     Dates: start: 20100618
  3. PREDNISOLONE. [Suspect]
     Active Substance: PREDNISOLONE
     Indication: DIFFUSE LARGE B-CELL LYMPHOMA
     Dosage: 6 CYCLES OF R-CHOP AT 3 WEEK INTERVAL PRIOR TO EACH CYCLE
     Dates: start: 20140122, end: 201406
  4. CYCLOPHOSPHAMIDE. [Suspect]
     Active Substance: CYCLOPHOSPHAMIDE
     Indication: DIFFUSE LARGE B-CELL LYMPHOMA
     Dosage: 6 CYCLES OF R-CHOP AT 3 WEEK INTERVAL PRIOR TO EACH CYCLE
     Dates: start: 20140122, end: 201406
  5. RITUXIMAB [Suspect]
     Active Substance: RITUXIMAB
     Indication: DIFFUSE LARGE B-CELL LYMPHOMA
     Dosage: 6 CYCLES OF R-CHOP AT 3 WEEK INTERVAL PRIOR TO EACH CYCLE
     Dates: start: 20140122, end: 201406
  6. VINCRISTINE SULFATE. [Suspect]
     Active Substance: VINCRISTINE SULFATE
     Indication: DIFFUSE LARGE B-CELL LYMPHOMA
     Dosage: 6 CYCLES OF R-CHOP AT 3 WEEK INTERVAL PRIOR TO EACH CYCLE
     Dates: start: 20140122, end: 201406

REACTIONS (5)
  - Agranulocytosis [None]
  - Neutropenia [None]
  - Leukopenia [None]
  - Platelet count decreased [None]
  - Eosinophil count increased [None]
